FAERS Safety Report 8017814-1 (Version None)
Quarter: 2012Q1

REPORT INFORMATION
  Report Type: 
  Country: None (occurrence: None)
  Receive Date: 20120103
  Receipt Date: 20111228
  Transmission Date: 20120608
  Serious: No
  Sender: FDA-Public Use
  Company Number: US-PFIZER INC-2011295114

PATIENT
  Sex: Male
  Weight: 127 kg

DRUGS (2)
  1. PROCARDIA XL [Suspect]
     Dosage: 30 MG, 2X/DAY
     Route: 048
  2. PROCARDIA XL [Suspect]
     Indication: HYPERTENSION
     Dosage: 60 MG, DAILY
     Route: 048
     Dates: start: 19900101

REACTIONS (1)
  - WEIGHT DECREASED [None]
